FAERS Safety Report 9734858 (Version 1)
Quarter: 2013Q4

REPORT INFORMATION
  Report Type: Spontaneous
  Country: FR (occurrence: FR)
  Receive Date: 20131206
  Receipt Date: 20131206
  Transmission Date: 20140711
  Serious: Yes (Death)
  Sender: FDA-Public Use
  Company Number: FR-009507513-1312FRA001585

PATIENT
  Age: 98 Year
  Sex: Female

DRUGS (2)
  1. STROMECTOL [Suspect]
     Indication: ACARODERMATITIS
     Dosage: 3 DF, UNK
     Route: 048
     Dates: start: 20130822
  2. SPREGAL [Suspect]
     Indication: ACARODERMATITIS
     Dosage: UNK
     Route: 061
     Dates: start: 20130822

REACTIONS (1)
  - Sudden death [Fatal]
